FAERS Safety Report 18400837 (Version 3)
Quarter: 2021Q2

REPORT INFORMATION
  Report Type: Report from Study
  Country: GB (occurrence: GB)
  Receive Date: 20201019
  Receipt Date: 20210416
  Transmission Date: 20210717
  Serious: Yes (Hospitalization)
  Sender: FDA-Public Use
  Company Number: NVSC2020GB274255

PATIENT
  Sex: Male

DRUGS (2)
  1. ETORICOXIB. [Concomitant]
     Active Substance: ETORICOXIB
     Indication: PRODUCT USED FOR UNKNOWN INDICATION
     Dosage: UNK, PRN
     Route: 065
  2. HYRIMOZ [Suspect]
     Active Substance: ADALIMUMAB-ADAZ
     Indication: ANKYLOSING SPONDYLITIS
     Dosage: 40MG/0.8ML (FORTNIGHTLY)
     Route: 058
     Dates: start: 20190415

REACTIONS (11)
  - Constipation [Unknown]
  - Product use complaint [Unknown]
  - Injection site pain [Unknown]
  - Hernia [Unknown]
  - Oesophageal disorder [Unknown]
  - Choking sensation [Unknown]
  - Large intestinal ulcer [Unknown]
  - Prostatic disorder [Unknown]
  - Malaise [Unknown]
  - Pain [Unknown]
  - Dysphagia [Unknown]
